FAERS Safety Report 8576088-3 (Version None)
Quarter: 2012Q2

REPORT INFORMATION
  Report Type: 
  Country: None (occurrence: None)
  Receive Date: 20120423
  Receipt Date: 20101022
  Transmission Date: 20120825
  Serious: Yes (Hospitalization, Other)
  Sender: FDA-Public Use
  Company Number: PHHY2010US60950

PATIENT
  Age: 28 Year
  Sex: Female
  Weight: 67 kg

DRUGS (4)
  1. NORTRIPTYLINE HCL [Concomitant]
  2. FENTANYL [Concomitant]
  3. EXJADE [Suspect]
     Indication: SICKLE CELL ANAEMIA
     Dosage: 1750 MG/ DAILY, ORAL
     Route: 048
     Dates: start: 20081125
  4. ASPIRIN [Concomitant]

REACTIONS (6)
  - MALAISE [None]
  - HAEMOGLOBIN DECREASED [None]
  - SICKLE CELL ANAEMIA WITH CRISIS [None]
  - BACK PAIN [None]
  - HEADACHE [None]
  - PAIN IN EXTREMITY [None]
